FAERS Safety Report 15358619 (Version 1)
Quarter: 2018Q3

REPORT INFORMATION
  Report Type: Spontaneous
  Country: US (occurrence: US)
  Receive Date: 20180906
  Receipt Date: 20180906
  Transmission Date: 20181010
  Serious: No
  Sender: FDA-Public Use
  Company Number: US-GE HEALTHCARE LIFE SCIENCES-2018CSU002713

PATIENT
  Age: 27 Year
  Sex: Female
  Weight: 48.98 kg

DRUGS (1)
  1. OMNIPAQUE [Suspect]
     Active Substance: IOHEXOL
     Indication: DIARRHOEA
     Dosage: 100 ML, SINGLE
     Route: 042
     Dates: start: 20180711, end: 20180711

REACTIONS (2)
  - Sneezing [Unknown]
  - Pruritus [Unknown]

NARRATIVE: CASE EVENT DATE: 20180711
